FAERS Safety Report 5116915-5 (Version None)
Quarter: 2006Q3

REPORT INFORMATION
  Report Type: 
  Country: None (occurrence: None)
  Receive Date: 20060925
  Receipt Date: 20060918
  Transmission Date: 20061208
  Serious: Yes (Death)
  Sender: FDA-Public Use
  Company Number: 0605254US

PATIENT
  Age: 52 Year
  Sex: Female

DRUGS (3)
  1. BOTULINUM TOXIN TYPE A (BOTULINUM TOXIN TYPE A) [Suspect]
     Indication: HYPERTONIC BLADDER
     Dosage: 300 UNITS, SINGLE, INTRAMUSCULAR
     Route: 030
  2. GENTAMYCIN-MP (GENTAMICIN SULFATE) [Concomitant]
  3. CIPROFLOXACIN [Concomitant]

REACTIONS (1)
  - BRONCHOPNEUMONIA [None]
